FAERS Safety Report 4399861-4 (Version None)
Quarter: 2004Q3

REPORT INFORMATION
  Report Type: 
  Country: None (occurrence: None)
  Receive Date: 20040716
  Receipt Date: 20040701
  Transmission Date: 20050211
  Serious: Yes (Hospitalization)
  Sender: FDA-Public Use
  Company Number: DE-JNJFOC-20040608292

PATIENT
  Age: 45 Year
  Sex: Male

DRUGS (9)
  1. INFLIXIMAB, RECOMBINAT- BLINDED  (INFLIXIMAB, RECOMBINANT) LYOPHILIZED [Suspect]
     Indication: CACHEXIA
     Dosage: INTRAVENOUS
     Route: 042
     Dates: start: 20040112
  2. INFLIXIMAB, RECOMBINAT- BLINDED  (INFLIXIMAB, RECOMBINANT) LYOPHILIZED [Suspect]
     Indication: CACHEXIA
     Dosage: INTRAVENOUS
     Route: 042
     Dates: start: 20040126
  3. INFLIXIMAB, RECOMBINAT- BLINDED  (INFLIXIMAB, RECOMBINANT) LYOPHILIZED [Suspect]
     Indication: CACHEXIA
     Dosage: INTRAVENOUS
     Route: 042
     Dates: start: 20040209
  4. INFLIXIMAB, RECOMBINAT- BLINDED  (INFLIXIMAB, RECOMBINANT) LYOPHILIZED [Suspect]
     Indication: CACHEXIA
     Dosage: INTRAVENOUS
     Route: 042
     Dates: start: 20040308
  5. PLACEBO (PLACEBO) LYOPHILIZD POWDER [Suspect]
     Indication: CACHEXIA
     Dosage: INTRAVENOUS
     Route: 042
     Dates: start: 20040112
  6. PLACEBO (PLACEBO) LYOPHILIZD POWDER [Suspect]
     Indication: CACHEXIA
     Dosage: INTRAVENOUS
     Route: 042
     Dates: start: 20040126
  7. PLACEBO (PLACEBO) LYOPHILIZD POWDER [Suspect]
     Indication: CACHEXIA
     Dosage: INTRAVENOUS
     Route: 042
     Dates: start: 20040209
  8. PLACEBO (PLACEBO) LYOPHILIZD POWDER [Suspect]
     Indication: CACHEXIA
     Dosage: INTRAVENOUS
     Route: 042
     Dates: start: 20040308
  9. GEMCITABINE (GEMCITABINE) [Concomitant]

REACTIONS (7)
  - BONE MARROW DEPRESSION [None]
  - COLD SWEAT [None]
  - DRUG INTERACTION [None]
  - GENERAL PHYSICAL HEALTH DETERIORATION [None]
  - HYPOTENSION [None]
  - RENAL FAILURE [None]
  - SEPSIS [None]
